FAERS Safety Report 4771366-8 (Version None)
Quarter: 2005Q3

REPORT INFORMATION
  Report Type: 
  Country: None (occurrence: None)
  Receive Date: 20050914
  Receipt Date: 20050825
  Transmission Date: 20060218
  Serious: Yes (Hospitalization, Other)
  Sender: FDA-Public Use
  Company Number: US_0412109203

PATIENT
  Age: 41 Year

DRUGS (13)
  1. HUMALOG [Suspect]
  2. HUMULIN N [Suspect]
  3. MAVIK [Concomitant]
  4. ENOXIN (ENOXACIN) [Concomitant]
  5. VERELAN (VERAPAMIL HYDROCHLORIDE) [Concomitant]
  6. NOVOLOG [Concomitant]
  7. ZOLOFT [Concomitant]
  8. ATENOLOL [Concomitant]
  9. DIGOXIN [Concomitant]
  10. ACETYLSALICYLIC ACID SRT [Concomitant]
  11. ACE INHIBITOR [Concomitant]
  12. LANTUS [Concomitant]
  13. LIPITOR [Concomitant]

REACTIONS (44)
  - ABDOMINAL PAIN [None]
  - ANTEROGRADE AMNESIA [None]
  - ANXIETY [None]
  - ARTHRALGIA [None]
  - AUTONOMIC NEUROPATHY [None]
  - CHEST DISCOMFORT [None]
  - CHEST PAIN [None]
  - CLAUSTROPHOBIA [None]
  - CONSTIPATION [None]
  - CONVERSION DISORDER [None]
  - CORONARY ARTERY DISEASE [None]
  - DEPRESSION [None]
  - DIABETES MELLITUS INADEQUATE CONTROL [None]
  - DIARRHOEA [None]
  - DYSPHONIA [None]
  - EPISTAXIS [None]
  - FACE INJURY [None]
  - FALL [None]
  - GASTROOESOPHAGEAL REFLUX DISEASE [None]
  - GLYCOSYLATED HAEMOGLOBIN INCREASED [None]
  - HAEMATOMA [None]
  - HEAD INJURY [None]
  - HYPOGLYCAEMIA [None]
  - IMPAIRED GASTRIC EMPTYING [None]
  - IMPAIRED HEALING [None]
  - JOINT INJURY [None]
  - KETOSIS [None]
  - LARYNGITIS [None]
  - LOSS OF CONSCIOUSNESS [None]
  - NEUROPATHY PERIPHERAL [None]
  - NOSE DEFORMITY [None]
  - OBESITY [None]
  - PANIC ATTACK [None]
  - PHARYNGITIS [None]
  - REFUSAL OF TREATMENT BY PATIENT [None]
  - RETROGRADE AMNESIA [None]
  - ROAD TRAFFIC ACCIDENT [None]
  - SINUSITIS [None]
  - SKIN ULCER [None]
  - SUPRAVENTRICULAR TACHYCARDIA [None]
  - SYNCOPE [None]
  - UPPER RESPIRATORY TRACT INFECTION [None]
  - VISUAL DISTURBANCE [None]
  - WOUND [None]
